FAERS Safety Report 18582123 (Version 1)
Quarter: 2020Q4

REPORT INFORMATION
  Report Type: Spontaneous
  Country: PL (occurrence: PL)
  Receive Date: 20201204
  Receipt Date: 20201204
  Transmission Date: 20210114
  Serious: Yes (Other)
  Sender: FDA-Public Use
  Company Number: PL-PURDUE-USA-2020-0180298

PATIENT
  Age: 19 Year
  Sex: Female

DRUGS (3)
  1. TRAMAL [Suspect]
     Active Substance: TRAMADOL
     Indication: ACCIDENTAL POISONING
     Dosage: 4 TABLET, UNK [DOSE: 4 TABLETS]
     Route: 048
     Dates: start: 20200212, end: 20200212
  2. OXYCODONE HYDROCHLORIDE. [Suspect]
     Active Substance: OXYCODONE HYDROCHLORIDE
     Indication: ACCIDENTAL POISONING
     Dosage: 40 MG, UNK
     Route: 048
     Dates: start: 20200212, end: 20200212
  3. CLONAZEPAM. [Suspect]
     Active Substance: CLONAZEPAM
     Indication: ACCIDENTAL POISONING
     Dosage: 3 TABLET, UNK [ DOSE: 3 TABLETS]
     Route: 048
     Dates: start: 20200212, end: 20200212

REACTIONS (2)
  - Coma [Recovered/Resolved]
  - Miosis [Recovered/Resolved]

NARRATIVE: CASE EVENT DATE: 20200212
